FAERS Safety Report 12706633 (Version 5)
Quarter: 2017Q1

REPORT INFORMATION
  Report Type: Report from Study
  Country: US (occurrence: US)
  Receive Date: 20160901
  Receipt Date: 20170131
  Transmission Date: 20170428
  Serious: Yes (Hospitalization, Other)
  Sender: FDA-Public Use
  Company Number: US-JNJFOC-20160801697

PATIENT
  Age: 81 Year
  Sex: Male
  Weight: 130 kg

DRUGS (8)
  1. RITUXAN [Suspect]
     Active Substance: RITUXIMAB
     Indication: CHRONIC LYMPHOCYTIC LEUKAEMIA
     Dates: start: 20140519
  2. RITUXAN [Suspect]
     Active Substance: RITUXIMAB
     Indication: CHRONIC LYMPHOCYTIC LEUKAEMIA
     Dates: start: 20140324
  3. RITUXAN [Suspect]
     Active Substance: RITUXIMAB
     Indication: CHRONIC LYMPHOCYTIC LEUKAEMIA
     Dates: start: 20140421
  4. IMBRUVICA [Suspect]
     Active Substance: IBRUTINIB
     Indication: CHRONIC LYMPHOCYTIC LEUKAEMIA
     Route: 048
     Dates: start: 20160422, end: 20160711
  5. RITUXAN [Suspect]
     Active Substance: RITUXIMAB
     Indication: CHRONIC LYMPHOCYTIC LEUKAEMIA
     Dates: start: 20140317
  6. IMBRUVICA [Suspect]
     Active Substance: IBRUTINIB
     Indication: CHRONIC LYMPHOCYTIC LEUKAEMIA
     Route: 048
     Dates: start: 20140317, end: 20160421
  7. IMBRUVICA [Suspect]
     Active Substance: IBRUTINIB
     Indication: CHRONIC LYMPHOCYTIC LEUKAEMIA
     Route: 048
     Dates: start: 201606
  8. RITUXAN [Suspect]
     Active Substance: RITUXIMAB
     Indication: CHRONIC LYMPHOCYTIC LEUKAEMIA
     Dates: start: 20140714

REACTIONS (41)
  - Pericardial effusion [Unknown]
  - Facial paralysis [Unknown]
  - Benign prostatic hyperplasia [Unknown]
  - Prostatic specific antigen increased [Unknown]
  - Rhinitis allergic [Unknown]
  - Cataract [Unknown]
  - Coronary artery disease [Unknown]
  - Peripheral vascular disorder [Unknown]
  - Hypoaesthesia [Unknown]
  - International normalised ratio increased [Unknown]
  - Blood creatinine increased [Unknown]
  - Gastrooesophageal reflux disease [Unknown]
  - Squamous cell carcinoma [Unknown]
  - Pleural effusion [Recovering/Resolving]
  - Dyspnoea exertional [Unknown]
  - Actinic keratosis [Unknown]
  - Bowen^s disease [Unknown]
  - Aortic valve disease [Unknown]
  - Milia [Unknown]
  - Blood glucose increased [Unknown]
  - Ecchymosis [Not Recovered/Not Resolved]
  - Eye contusion [Unknown]
  - Neutrophil count decreased [Not Recovered/Not Resolved]
  - Epistaxis [Unknown]
  - White blood cell count increased [Unknown]
  - Haemoglobin decreased [Unknown]
  - Renal failure [Unknown]
  - Diplopia [Unknown]
  - Hydrocele [Unknown]
  - Haematospermia [Unknown]
  - Peripheral swelling [Not Recovered/Not Resolved]
  - Sleep apnoea syndrome [Unknown]
  - Pneumonia [Unknown]
  - Hyperlipidaemia [Unknown]
  - Blood urea increased [Unknown]
  - Platelet count decreased [Unknown]
  - Off label use [Recovered/Resolved]
  - Aortic stenosis [Unknown]
  - Dysplastic naevus [Unknown]
  - Incorrect dose administered [Recovered/Resolved]
  - Red blood cell count decreased [Unknown]

NARRATIVE: CASE EVENT DATE: 20140317
